FAERS Safety Report 5098955-8 (Version None)
Quarter: 2006Q3

REPORT INFORMATION
  Report Type: 
  Country: None (occurrence: None)
  Receive Date: 20060907
  Receipt Date: 20060826
  Transmission Date: 20061208
  Serious: Yes (Other)
  Sender: FDA-Public Use
  Company Number: PHBS2006BR13163

PATIENT
  Age: 36 Year
  Sex: Female

DRUGS (3)
  1. ZELMAC [Suspect]
     Indication: CONSTIPATION
     Dosage: 12 MG/DAY
     Route: 048
  2. LISADOR [Concomitant]
  3. LUFTAL [Concomitant]

REACTIONS (2)
  - HAEMORRHAGE [None]
  - SURGERY [None]
